FAERS Safety Report 5158735-1 (Version None)
Quarter: 2006Q4

REPORT INFORMATION
  Report Type: 
  Country: None (occurrence: None)
  Receive Date: 20061128
  Receipt Date: 20061122
  Transmission Date: 20070319
  Serious: Yes (Life-Threatening)
  Sender: FDA-Public Use
  Company Number: GB-GLAXOSMITHKLINE-B0448255A

PATIENT
  Age: 62 Year
  Sex: Male
  Weight: 77 kg

DRUGS (10)
  1. CEFUROXIME SODIUM [Suspect]
     Indication: DRUG USE FOR UNKNOWN INDICATION
     Route: 042
     Dates: start: 20061108, end: 20061108
  2. ASPIRIN [Concomitant]
     Route: 048
  3. AZATHIOPRINE [Concomitant]
     Dosage: 100MG TWICE PER DAY
     Route: 048
  4. CLEXANE [Concomitant]
     Dosage: 40MG PER DAY
     Route: 058
  5. ACETAMINOPHEN W/ CODEINE [Concomitant]
     Dosage: 1TAB FOUR TIMES PER DAY
     Route: 048
  6. FELODIPINE [Concomitant]
     Route: 048
  7. FLUOXETINE [Concomitant]
     Route: 048
  8. FOLIC ACID [Concomitant]
     Route: 048
  9. LANSOPRAZOLE [Concomitant]
     Route: 048
  10. TRAMADOL HCL [Concomitant]
     Dosage: 100MG FOUR TIMES PER DAY
     Route: 048

REACTIONS (2)
  - ATRIOVENTRICULAR BLOCK SECOND DEGREE [None]
  - SINUS RHYTHM [None]
